FAERS Safety Report 4758436-5 (Version None)
Quarter: 2005Q3

REPORT INFORMATION
  Report Type: 
  Country: None (occurrence: None)
  Receive Date: 20050829
  Receipt Date: 20050817
  Transmission Date: 20060218
  Serious: Yes (Hospitalization)
  Sender: FDA-Public Use
  Company Number: 2005117062

PATIENT
  Age: 12 Year
  Sex: Female

DRUGS (2)
  1. NORVASC [Suspect]
     Indication: ILL-DEFINED DISORDER
     Dosage: ORAL
     Route: 048
  2. DIOVAN [Concomitant]

REACTIONS (3)
  - BLOOD CREATININE ABNORMAL [None]
  - MULTIPLE DRUG OVERDOSE [None]
  - SCHOOL REFUSAL [None]
